FAERS Safety Report 26187328 (Version 1)
Quarter: 2025Q4

REPORT INFORMATION
  Report Type: Spontaneous
  Country: EU (occurrence: EU)
  Receive Date: 20251222
  Receipt Date: 20251222
  Transmission Date: 20260118
  Serious: Yes (Hospitalization)
  Sender: BRACCO
  Company Number: None

PATIENT
  Age: 67 Year
  Sex: Female

DRUGS (1)
  1. IOMERON [Suspect]
     Active Substance: IOMEPROL
     Indication: X-ray
     Dosage: 109ML
     Dates: start: 20251210, end: 20251210

REACTIONS (4)
  - Respiration abnormal [Unknown]
  - Blood pressure increased [Unknown]
  - Muscle spasms [Unknown]
  - Palpitations [Unknown]

NARRATIVE: CASE EVENT DATE: 20251210
